FAERS Safety Report 7935738-2 (Version None)
Quarter: 2011Q4

REPORT INFORMATION
  Report Type: 
  Country: None (occurrence: None)
  Receive Date: 20111123
  Receipt Date: 20111115
  Transmission Date: 20120403
  Serious: Yes (Hospitalization)
  Sender: FDA-Public Use
  Company Number: US-JNJFOC-20111101059

PATIENT
  Sex: Female
  Weight: 27.4 kg

DRUGS (3)
  1. METHOTREXATE [Concomitant]
  2. PREDNISONE TAB [Concomitant]
  3. INFLIXIMAB, RECOMBINANT [Suspect]
     Indication: INFLAMMATORY BOWEL DISEASE
     Route: 042
     Dates: start: 20110407

REACTIONS (1)
  - COLITIS [None]
